FAERS Safety Report 9113243 (Version 1)
Quarter: 2013Q1

REPORT INFORMATION
  Report Type: Spontaneous
  Country: BR (occurrence: BR)
  Receive Date: 20130211
  Receipt Date: 20130211
  Transmission Date: 20140127
  Serious: Yes (Other)
  Sender: FDA-Public Use
  Company Number: BR-BRISTOL-MYERS SQUIBB COMPANY-17339664

PATIENT
  Sex: Female

DRUGS (2)
  1. APROZIDE [Suspect]
     Indication: BLOOD PRESSURE MANAGEMENT
     Dosage: APROZIDE TABS 150MG/12.5MG
  2. RIVOTRIL [Suspect]

REACTIONS (6)
  - Accident [Unknown]
  - Movement disorder [Unknown]
  - Amnesia [Unknown]
  - Balance disorder [Unknown]
  - Dizziness [Unknown]
  - Bedridden [None]
